FAERS Safety Report 8994442 (Version 1)
Quarter: 2012Q4

REPORT INFORMATION
  Report Type: Spontaneous
  Country: US (occurrence: None)
  Receive Date: 20121228
  Receipt Date: 20121228
  Transmission Date: 20130627
  Serious: Yes (Other)
  Sender: FDA-Public Use
  Company Number: None

PATIENT
  Age: 64 Year
  Sex: Female
  Weight: 48.54 kg

DRUGS (3)
  1. SUCRALFATE [Suspect]
     Indication: ABDOMINAL DISORDER
     Route: 048
     Dates: start: 20120309
  2. UNSPECIFIED [Suspect]
     Indication: DENTAL FILLINGS
     Dosage: oral
     Route: 048
  3. UNSPECIFIED [Suspect]
     Indication: ARTIFICIAL CROWN INSERTION
     Dosage: oral
     Route: 048

REACTIONS (4)
  - Abdominal pain upper [None]
  - Diarrhoea [None]
  - Nausea [None]
  - Tooth disorder [None]
